FAERS Safety Report 13123689 (Version 1)
Quarter: 2017Q1

REPORT INFORMATION
  Report Type: Not Available
  Country: JP (occurrence: JP)
  Receive Date: 20170117
  Receipt Date: 20170117
  Transmission Date: 20170428
  Serious: Yes (Disabling)
  Sender: FDA-Public Use
  Company Number: JP--2017-JP-000001

PATIENT
  Age: 52 Year
  Sex: Male

DRUGS (1)
  1. METRONIDAZOLE BRAND UNSPECIFIED (VIVIMED) [Suspect]
     Active Substance: METRONIDAZOLE
     Indication: ANTIBIOTIC THERAPY
     Dosage: ORAL ADMINISTRATION OF METRONIDAZOLE (1500 MG/DAY)
     Route: 048

REACTIONS (2)
  - Toxic encephalopathy [Recovered/Resolved with Sequelae]
  - Cerebral cyst [None]
